FAERS Safety Report 24676926 (Version 1)
Quarter: 2024Q4

REPORT INFORMATION
  Report Type: Spontaneous
  Country: CH (occurrence: CH)
  Receive Date: 20241128
  Receipt Date: 20241128
  Transmission Date: 20250115
  Serious: Yes (Other)
  Sender: NOVARTIS
  Company Number: None

PATIENT
  Age: 75 Year
  Sex: Male
  Weight: 69 kg

DRUGS (7)
  1. LEQVIO [Suspect]
     Active Substance: INCLISIRAN SODIUM
     Indication: Dyslipidaemia
     Dosage: 284 MG, Q3MO (INCLISIRAN PER DOSE, 1X RECEIVED)
     Route: 058
     Dates: start: 20240815
  2. LEQVIO [Suspect]
     Active Substance: INCLISIRAN SODIUM
     Indication: Peripheral arterial occlusive disease
  3. LAXIPEG [Concomitant]
     Indication: Product used for unknown indication
     Dosage: 3 TOTAL, QD
     Route: 048
  4. CALCIUM CARBONATE\CHOLECALCIFEROL [Concomitant]
     Active Substance: CALCIUM CARBONATE\CHOLECALCIFEROL
     Indication: Product used for unknown indication
     Dosage: 1 TOTAL, QD
     Route: 048
  5. PANTOPRAZOLE SODIUM [Concomitant]
     Active Substance: PANTOPRAZOLE SODIUM
     Indication: Product used for unknown indication
     Dosage: 20 MG, QD
     Route: 048
  6. ASPIRIN [Concomitant]
     Active Substance: ASPIRIN
     Indication: Product used for unknown indication
     Dosage: 100 MG, QD
     Route: 065
  7. AJOVY [Concomitant]
     Active Substance: FREMANEZUMAB-VFRM
     Indication: Product used for unknown indication
     Dosage: 225 MG, QMO
     Route: 058

REACTIONS (3)
  - Prostatitis [Not Recovered/Not Resolved]
  - Urinary tract infection enterococcal [Not Recovered/Not Resolved]
  - Pyuria [Not Recovered/Not Resolved]

NARRATIVE: CASE EVENT DATE: 20240815
